FAERS Safety Report 9607694 (Version 1)
Quarter: 2013Q4

REPORT INFORMATION
  Report Type: Report from Study
  Country: CA (occurrence: CA)
  Receive Date: 20131009
  Receipt Date: 20131009
  Transmission Date: 20140711
  Serious: Yes (Hospitalization)
  Sender: FDA-Public Use
  Company Number: CA-JNJFOC-20131001081

PATIENT
  Sex: Male
  Weight: 65 kg

DRUGS (9)
  1. REMICADE [Suspect]
     Indication: CROHN^S DISEASE
     Route: 042
     Dates: start: 20130813
  2. REMICADE [Suspect]
     Indication: CROHN^S DISEASE
     Route: 042
     Dates: start: 20120831
  3. VITAMIN B3 [Concomitant]
     Route: 048
  4. K-DUR [Concomitant]
     Route: 048
  5. DEXILANT [Concomitant]
     Route: 048
  6. ASA [Concomitant]
     Route: 048
  7. IMURAN [Concomitant]
     Route: 048
  8. FERROUS GLUCONATE [Concomitant]
     Route: 048
  9. LORAZEPAM [Concomitant]
     Dosage: HOUR OF SLEEP
     Route: 048

REACTIONS (2)
  - Cerebrovascular accident [Recovering/Resolving]
  - Kidney infection [Recovering/Resolving]
